FAERS Safety Report 16326662 (Version 1)
Quarter: 2019Q2

REPORT INFORMATION
  Report Type: Spontaneous
  Country: US (occurrence: US)
  Receive Date: 20190517
  Receipt Date: 20190517
  Transmission Date: 20190711
  Serious: Yes (Other)
  Sender: FDA-Public Use
  Company Number: US-TAIHO ONCOLOGY  INC-EU-2018-01821

PATIENT
  Sex: Female
  Weight: 83.99 kg

DRUGS (20)
  1. LONSURF [Suspect]
     Active Substance: TIPIRACIL HYDROCHLORIDE\TRIFLURIDINE
     Indication: COLORECTAL CANCER METASTATIC
     Dosage: FIRST SHIP DATE WITH ACCREDO 05/SEP/2018, CYCLE UNKNOWN
     Route: 048
     Dates: start: 201809, end: 2018
  2. SANCUSO [Concomitant]
     Active Substance: GRANISETRON
     Dosage: 3.1MG/24HR PATCH TDWK
  3. PROMETHAZINE HCL [Concomitant]
     Active Substance: PROMETHAZINE HYDROCHLORIDE
  4. SUDAFED [Concomitant]
     Active Substance: PSEUDOEPHEDRINE HYDROCHLORIDE
  5. ALEVE [Concomitant]
     Active Substance: NAPROXEN SODIUM
  6. CLARITIN [Concomitant]
     Active Substance: LORATADINE
  7. LIDODERM [Concomitant]
     Active Substance: LIDOCAINE
     Dosage: ADH. PATCH
  8. MACROBID [Concomitant]
     Active Substance: NITROFURANTOIN\NITROFURANTOIN MONOHYDRATE
  9. GAS-X [Concomitant]
     Active Substance: DIMETHICONE
  10. REMERON [Concomitant]
     Active Substance: MIRTAZAPINE
  11. FLUCONAZOLE. [Concomitant]
     Active Substance: FLUCONAZOLE
  12. LORAZEPAM. [Concomitant]
     Active Substance: LORAZEPAM
  13. FIORICET [Concomitant]
     Active Substance: ACETAMINOPHEN\BUTALBITAL\CAFFEINE
     Dosage: 50-300-40 CAP
  14. NORCO [Concomitant]
     Active Substance: ACETAMINOPHEN\HYDROCODONE BITARTRATE
     Dosage: 10-325MG
  15. LOMOTIL [Concomitant]
     Active Substance: ATROPINE SULFATE\DIPHENOXYLATE HYDROCHLORIDE
     Dosage: 2.5-.025MG
  16. ACTIQ [Concomitant]
     Active Substance: FENTANYL CITRATE
     Dosage: LOZENGE HD
  17. ZOFRAN [Concomitant]
     Active Substance: ONDANSETRON HYDROCHLORIDE
  18. ROBAXIN [Concomitant]
     Active Substance: METHOCARBAMOL
     Dosage: 100MG/ML  VIAL
  19. TYLENOL [Concomitant]
     Active Substance: ACETAMINOPHEN
  20. LONSURF [Suspect]
     Active Substance: TIPIRACIL HYDROCHLORIDE\TRIFLURIDINE
     Dosage: CURRENT CYCLE UNKNOWN, INTERRUPTED ON AN UNSPECIFIED DATE
     Route: 048
     Dates: start: 2018

REACTIONS (9)
  - Dyspepsia [Recovered/Resolved]
  - Platelet count decreased [Not Recovered/Not Resolved]
  - Urinary tract infection [Recovered/Resolved]
  - White blood cell count decreased [Not Recovered/Not Resolved]
  - Alopecia [Not Recovered/Not Resolved]
  - Cytopenia [Unknown]
  - Anaemia [Not Recovered/Not Resolved]
  - Oropharyngeal pain [Recovered/Resolved]
  - Nausea [Not Recovered/Not Resolved]

NARRATIVE: CASE EVENT DATE: 2018
